FAERS Safety Report 7786498-X (Version None)
Quarter: 2011Q3

REPORT INFORMATION
  Report Type: 
  Country: None (occurrence: None)
  Receive Date: 20110929
  Receipt Date: 20110922
  Transmission Date: 20111222
  Serious: Yes (Hospitalization)
  Sender: FDA-Public Use
  Company Number: US-GLAXOSMITHKLINE-A0838810A

PATIENT
  Age: 63 Year
  Sex: Male

DRUGS (10)
  1. SPIRIVA [Concomitant]
  2. JANUVIA [Concomitant]
  3. AVANDAMET [Suspect]
     Indication: DIABETES MELLITUS
     Route: 048
  4. DIOVAN [Concomitant]
  5. METOPROLOL TARTRATE [Concomitant]
  6. DILTIAZEM HCL [Concomitant]
  7. HYDROCHLOROTHIAZIDE [Concomitant]
  8. AVANDIA [Suspect]
     Indication: DIABETES MELLITUS
     Dosage: 8MG PER DAY
     Route: 048
     Dates: start: 20040101, end: 20080401
  9. METFORMIN HCL [Concomitant]
     Dates: end: 20080401
  10. CRESTOR [Concomitant]

REACTIONS (5)
  - CARDIAC FAILURE CONGESTIVE [None]
  - AORTIC ANEURYSM [None]
  - ACUTE CORONARY SYNDROME [None]
  - MYOCARDIAL INFARCTION [None]
  - ISCHAEMIC CARDIOMYOPATHY [None]
